FAERS Safety Report 13616066 (Version 1)
Quarter: 2017Q2

REPORT INFORMATION
  Report Type: Spontaneous
  Country: FR (occurrence: FR)
  Receive Date: 20170606
  Receipt Date: 20170606
  Transmission Date: 20170830
  Serious: Yes (Death, Other)
  Sender: FDA-Public Use
  Company Number: FR-TEVA-772865ROM

PATIENT
  Age: 87 Year
  Sex: Female

DRUGS (11)
  1. OXYBUTYNINE [Suspect]
     Active Substance: OXYBUTYNIN CHLORIDE
     Indication: INCONTINENCE
     Dosage: 2 DOSAGE FORMS DAILY;
     Route: 048
     Dates: start: 201602, end: 20170424
  2. TARDYFERON [Concomitant]
     Active Substance: FERROUS SULFATE
  3. INEGY 10 MG/20 MG [Suspect]
     Active Substance: EZETIMIBE\SIMVASTATIN
     Indication: HYPERCHOLESTEROLAEMIA
     Dosage: 1 DOSAGE FORMS DAILY; 1 DOSAGE FORM= 10 MG EZETIMIBE + 20 MG SIMVASTATINE
     Route: 048
     Dates: start: 2015, end: 20170424
  4. KARDEGIC [Suspect]
     Active Substance: ASPIRIN LYSINE
     Indication: PROPHYLAXIS
     Dosage: 1 DOSAGE FORMS DAILY;
     Route: 048
     Dates: start: 2015, end: 20170426
  5. ALDACTONE [Suspect]
     Active Substance: SPIRONOLACTONE
     Indication: HYPERTENSION
     Dosage: 1 DOSAGE FORMS DAILY;
     Route: 048
     Dates: start: 20170328, end: 20170424
  6. MOPRAL 20 MG [Suspect]
     Active Substance: OMEPRAZOLE
     Indication: GASTROOESOPHAGEAL REFLUX DISEASE
     Dosage: 1 DOSAGE FORMS DAILY; FORM: GASTRO-RESISTANT TABLET
     Route: 048
     Dates: start: 2015, end: 20170424
  7. CHOLECALCIFEROL [Concomitant]
     Active Substance: CHOLECALCIFEROL
  8. CACIT VITAMINE D3 500 MG/440 UI [Suspect]
     Active Substance: CALCIUM CARBONATE\CHOLECALCIFEROL
     Indication: HYPOCALCAEMIA
     Dosage: 2 DOSAGE FORMS DAILY; 1 DOSAGE FORM= 500 MG CALCIUM + 440 IU CHOLECALCIFEROL
     Route: 048
     Dates: end: 20170424
  9. COVERSYL 5 MG [Suspect]
     Active Substance: PERINDOPRIL
     Indication: HYPERTENSION
     Dosage: 1 DOSAGE FORMS DAILY;
     Route: 048
     Dates: start: 201703, end: 20170424
  10. REFRESH [Suspect]
     Active Substance: UNSPECIFIED INGREDIENT
     Indication: DRY EYE
     Dosage: 2 DOSAGE FORMS DAILY;
     Route: 047
     Dates: end: 20170424
  11. SPECIAFOLDINE [Concomitant]
     Active Substance: FOLIC ACID

REACTIONS (4)
  - Hyponatraemia [Recovered/Resolved]
  - Fall [Fatal]
  - Haematoma [Fatal]
  - Altered state of consciousness [Fatal]

NARRATIVE: CASE EVENT DATE: 201704
